FAERS Safety Report 21975682 (Version 2)
Quarter: 2023Q1

REPORT INFORMATION
  Report Type: Spontaneous
  Country: AU (occurrence: AU)
  Receive Date: 20230210
  Receipt Date: 20230323
  Transmission Date: 20230417
  Serious: Yes (Other)
  Sender: FDA-Public Use
  Company Number: AU-SA-2023SA041877

PATIENT
  Age: 70 Year
  Sex: Male

DRUGS (5)
  1. IRBESARTAN [Suspect]
     Active Substance: IRBESARTAN
     Dosage: 300 MG
     Route: 048
  2. ATORVASTATIN [Suspect]
     Active Substance: ATORVASTATIN
     Indication: Hyperlipidaemia
     Dosage: 40 MG
     Route: 048
  3. CARBIDOPA\LEVODOPA [Suspect]
     Active Substance: CARBIDOPA\LEVODOPA
     Dosage: 200 MG/50 MG CONTROLLED-RELEASE TABLET
     Route: 048
  4. EZETIMIBE [Suspect]
     Active Substance: EZETIMIBE
     Dosage: 10 MG
     Route: 048
  5. MIRTAZAPINE [Suspect]
     Active Substance: MIRTAZAPINE
     Dosage: 45 MG
     Route: 048

REACTIONS (3)
  - Choking [Unknown]
  - Foreign body in throat [Unknown]
  - Product use complaint [Unknown]
